FAERS Safety Report 5950568-9 (Version None)
Quarter: 2008Q4

REPORT INFORMATION
  Report Type: 
  Country: None (occurrence: None)
  Receive Date: 20081112
  Receipt Date: 20081105
  Transmission Date: 20090506
  Serious: Yes (Other)
  Sender: FDA-Public Use
  Company Number: US-ELI_LILLY_AND_COMPANY-US200811001140

PATIENT
  Age: 69 Year
  Sex: Male

DRUGS (2)
  1. HUMULIN R [Suspect]
  2. HUMALOG [Suspect]
     Dates: start: 20060101

REACTIONS (8)
  - ANXIETY [None]
  - BLADDER CANCER [None]
  - BLOOD GLUCOSE INCREASED [None]
  - GASTRIC OPERATION [None]
  - MEMORY IMPAIRMENT [None]
  - NEOPLASM MALIGNANT [None]
  - RENAL CANCER [None]
  - WEIGHT INCREASED [None]
